FAERS Safety Report 9329697 (Version 2)
Quarter: 2014Q2

REPORT INFORMATION
  Report Type: Spontaneous
  Country: US (occurrence: US)
  Receive Date: 20130604
  Receipt Date: 20140524
  Transmission Date: 20141212
  Serious: No
  Sender: FDA-Public Use
  Company Number: US-SANOFI-AVENTIS-2013SA033436

PATIENT
  Age: 64 Year
  Sex: Male
  Weight: 100 kg

DRUGS (9)
  1. LANTUS [Suspect]
     Indication: TYPE 2 DIABETES MELLITUS
     Dosage: PRODUCT START DATE-30 DAYS AGO DOSE:10 UNIT(S)
  2. LANTUS [Suspect]
     Indication: TYPE 2 DIABETES MELLITUS
     Dosage: DOSE:25 UNIT(S)
     Route: 051
     Dates: start: 20130101, end: 20130227
  3. AMMONIUM LACTATE [Concomitant]
     Indication: TINEA PEDIS
  4. ASPIRIN [Concomitant]
     Indication: ANTICOAGULANT THERAPY
  5. FERROUS GLUCONATE [Concomitant]
     Indication: BLOOD IRON
  6. GLIPIZIDE [Concomitant]
     Indication: DIABETES MELLITUS
  7. MOMETASONE FUROATE [Concomitant]
     Indication: TINEA PEDIS
  8. JANUVIA [Concomitant]
     Indication: DIABETES MELLITUS
  9. LISINOPRIL [Concomitant]
     Indication: PAIN

REACTIONS (4)
  - Irritable bowel syndrome [Recovered/Resolved]
  - Diarrhoea [Recovered/Resolved]
  - Abdominal pain [Recovered/Resolved]
  - Blood glucose increased [Unknown]
